FAERS Safety Report 8090831-1 (Version None)
Quarter: 2012Q1

REPORT INFORMATION
  Report Type: 
  Country: None (occurrence: None)
  Receive Date: 20120131
  Receipt Date: 20120123
  Transmission Date: 20120608
  Serious: Yes (Hospitalization, Other)
  Sender: FDA-Public Use
  Company Number: US-BAYER-2011-036248

PATIENT
  Age: 28 Year
  Sex: Female
  Weight: 127 kg

DRUGS (9)
  1. YASMIN [Suspect]
     Indication: CONTRACEPTION
     Dosage: UNK
     Dates: start: 20031223, end: 20071001
  2. ABILIFY [Concomitant]
     Indication: BIPOLAR DISORDER
     Dosage: UNK
     Dates: start: 20030101
  3. EFFEXOR XR [Concomitant]
     Indication: DEPRESSION
     Dosage: UNK
     Dates: start: 20030501, end: 20060801
  4. LEVAQUIN [Concomitant]
     Dosage: UNK
     Dates: start: 20041201
  5. LORAZEPAM [Concomitant]
     Dosage: UNK
     Dates: start: 20040401, end: 20050701
  6. RANITIDINE [Concomitant]
     Dosage: UNK
     Dates: start: 20050103
  7. BUSPIRONE HCL [Concomitant]
     Indication: ANXIETY
     Dosage: UNK
     Dates: start: 20030501, end: 20070601
  8. AMBIEN [Concomitant]
     Indication: INSOMNIA
     Dosage: UNK
     Dates: start: 20030701, end: 20060401
  9. PROPRANOLOL HCL W/HYDROCHLOROTHIAZIDE [Concomitant]
     Dosage: UNK
     Dates: start: 20050101, end: 20050801

REACTIONS (10)
  - MENTAL DISORDER [None]
  - CHOLECYSTITIS ACUTE [None]
  - ARTHRITIS [None]
  - DISCOMFORT [None]
  - CHOLELITHIASIS [None]
  - EAR INFECTION [None]
  - PAIN [None]
  - DIARRHOEA [None]
  - ANXIETY [None]
  - EMOTIONAL DISTRESS [None]
